FAERS Safety Report 13093026 (Version 1)
Quarter: 2017Q1

REPORT INFORMATION
  Report Type: Report from Study
  Country: IT (occurrence: IT)
  Receive Date: 20170106
  Receipt Date: 20170106
  Transmission Date: 20170428
  Serious: Yes (Death)
  Sender: FDA-Public Use
  Company Number: IT-PFIZER INC-2017004584

PATIENT
  Age: 50 Year

DRUGS (2)
  1. EPIRUBICIN HCL [Suspect]
     Active Substance: EPIRUBICIN HYDROCHLORIDE
     Indication: BREAST CANCER
     Dosage: 75 MG/M2, CYCLIC (DAY 1, EVERY 3 WEEKS)
     Route: 042
  2. DOCETAXEL. [Suspect]
     Active Substance: DOCETAXEL
     Indication: BREAST CANCER
     Dosage: 80 MG/M2, CYCLIC (DAY 1, EVERY 3 WEEKS), 1-HOUR INTRAVENOUS INFUSION
     Route: 042

REACTIONS (1)
  - Rectal haemorrhage [Fatal]
